FAERS Safety Report 6314793-X (Version None)
Quarter: 2009Q3

REPORT INFORMATION
  Report Type: 
  Country: None (occurrence: None)
  Receive Date: 20090819
  Receipt Date: 20090805
  Transmission Date: 20100115
  Serious: Yes (Other)
  Sender: FDA-Public Use
  Company Number: PL-ROCHE-647679

PATIENT
  Sex: Male
  Weight: 69 kg

DRUGS (20)
  1. MIRCERA [Suspect]
     Indication: ANAEMIA
     Route: 058
     Dates: start: 20081211
  2. MIRCERA [Suspect]
     Route: 058
     Dates: start: 20081223
  3. MIRCERA [Suspect]
     Route: 058
     Dates: start: 20090122
  4. MIRCERA [Suspect]
     Route: 058
     Dates: start: 20090219
  5. MIRCERA [Suspect]
     Route: 058
     Dates: start: 20090319
  6. MIRCERA [Suspect]
     Route: 058
     Dates: start: 20090416
  7. MIRCERA [Suspect]
     Route: 058
     Dates: start: 20090514
  8. MIRCERA [Suspect]
     Route: 058
     Dates: start: 20090610
  9. MIRCERA [Suspect]
     Route: 058
     Dates: start: 20090709
  10. RIBAVIRIN [Suspect]
     Dosage: DRUG NAME: RYBAVIRIN (NOS)
     Route: 065
     Dates: start: 20081031
  11. PEG-INTRON [Suspect]
     Indication: HEPATITIS C
     Route: 058
     Dates: start: 20081031
  12. CERTICAN [Suspect]
     Indication: LIVER TRANSPLANT
     Route: 048
     Dates: start: 20080520
  13. ENCORTON [Concomitant]
     Indication: LIVER TRANSPLANT
     Dosage: FREQUENCY: DAILY
     Route: 048
     Dates: start: 20080226
  14. PROGRAF [Concomitant]
     Indication: LIVER TRANSPLANT
     Route: 048
     Dates: start: 20080226
  15. URSO FALK [Concomitant]
     Indication: LIVER TRANSPLANT
     Route: 048
     Dates: start: 20080226
  16. BISEPTOL [Concomitant]
     Indication: LIVER TRANSPLANT
     Route: 048
     Dates: start: 20080520
  17. MAGNEFAR B6 [Concomitant]
     Dosage: FREQUENCY REPORTED AS 2X2 TABL.
  18. XARTAN [Concomitant]
     Dosage: DRUG NAME: XARTAN 2X50 MG
  19. DIUVER [Concomitant]
     Dosage: DRUG NAME: DIUVER 1X10 MG
  20. GRANOCYTE [Concomitant]
     Indication: NEUTROPENIA
     Dosage: FREQUENCY: 1X1 AMP
     Route: 058

REACTIONS (3)
  - ANAEMIA [None]
  - BONE MARROW FAILURE [None]
  - DRUG INEFFECTIVE [None]
